FAERS Safety Report 23169725 (Version 1)
Quarter: 2023Q4

REPORT INFORMATION
  Report Type: Report from Study
  Country: US (occurrence: US)
  Receive Date: 20231110
  Receipt Date: 20231110
  Transmission Date: 20240109
  Serious: Yes (Death, Other)
  Sender: FDA-Public Use
  Company Number: US-ALXN-202311GLO000204US

PATIENT
  Age: 75 Year
  Sex: Female

DRUGS (8)
  1. SOLIRIS [Suspect]
     Active Substance: ECULIZUMAB
     Indication: Myasthenia gravis
     Dosage: 900 MILLIGRAM
     Route: 065
     Dates: start: 20190503, end: 20190524
  2. SOLIRIS [Suspect]
     Active Substance: ECULIZUMAB
     Dosage: 1200 MILLIGRAM
     Route: 065
     Dates: start: 20190603, end: 20230123
  3. ULTOMIRIS [Suspect]
     Active Substance: RAVULIZUMAB-CWVZ
     Dosage: 2700 MILLIGRAM
     Route: 065
     Dates: start: 20230206, end: 20230206
  4. ULTOMIRIS [Suspect]
     Active Substance: RAVULIZUMAB-CWVZ
     Dosage: 3300 MILLIGRAM
     Route: 065
     Dates: start: 20230221, end: 20230808
  5. MENINGOCOCCAL POLYSACCHARIDE VACCINE A NOS [Concomitant]
     Active Substance: MENINGOCOCCAL POLYSACCHARIDE VACCINE A\NEISSERIA MENINGITIDIS GROUP A CAPSULAR POLYSACCHARIDE ANTIGE
     Indication: Immunisation
     Dosage: 0.5 MILLILITER
     Route: 030
     Dates: start: 20190412
  6. TRUMENBA [Concomitant]
     Active Substance: NEISSERIA MENINGITIDIS SEROGROUP B RECOMBINANT LP2086 A05 PROTEIN VARIANT ANTIGEN\NEISSERIA MENINGIT
     Indication: Immunisation
     Dosage: 0.5 UNK
     Route: 030
     Dates: start: 20211221
  7. TRUMENBA [Concomitant]
     Active Substance: NEISSERIA MENINGITIDIS SEROGROUP B RECOMBINANT LP2086 A05 PROTEIN VARIANT ANTIGEN\NEISSERIA MENINGIT
     Dosage: 0.5
     Route: 030
     Dates: start: 20230413
  8. MENQUADFI [Concomitant]
     Active Substance: NEISSERIA MENINGITIDIS GROUP A CAPSULAR POLYSACCHARIDE TETANUS TOXOID CONJUGATE ANTIGEN\NEISSERIA ME
     Indication: Immunisation
     Dosage: 0.5
     Route: 030
     Dates: start: 20230413

REACTIONS (1)
  - Myocardial infarction [Fatal]

NARRATIVE: CASE EVENT DATE: 20230830
